FAERS Safety Report 13099396 (Version 1)
Quarter: 2017Q1

REPORT INFORMATION
  Report Type: Spontaneous
  Country: GB (occurrence: GB)
  Receive Date: 20170109
  Receipt Date: 20170109
  Transmission Date: 20170428
  Serious: Yes (Hospitalization)
  Sender: FDA-Public Use
  Company Number: GB-IMPAX LABORATORIES, INC-2016-IPXL-02496

PATIENT
  Age: 36 Year
  Sex: Male

DRUGS (4)
  1. LEVETIRACETAM. [Concomitant]
     Active Substance: LEVETIRACETAM
     Indication: PARTIAL SEIZURES
     Dosage: 1500 MG, BID
     Route: 065
  2. DIVALPROEX SODIUM ER [Suspect]
     Active Substance: DIVALPROEX SODIUM
     Indication: PARTIAL SEIZURES
     Dosage: 1000 MG, DAILY
     Route: 042
  3. LACOSAMIDE. [Concomitant]
     Active Substance: LACOSAMIDE
     Indication: PARTIAL SEIZURES
     Dosage: 100 MG, BID
     Route: 065
  4. PHENYTOIN CHEWABLE [Suspect]
     Active Substance: PHENYTOIN
     Indication: PARTIAL SEIZURES
     Dosage: 150 MG, BID
     Route: 065

REACTIONS (1)
  - Hyperkinesia [Recovered/Resolved]
